FAERS Safety Report 4474265-4 (Version None)
Quarter: 2004Q4

REPORT INFORMATION
  Report Type: 
  Country: None (occurrence: None)
  Receive Date: 20041013
  Receipt Date: 20041013
  Transmission Date: 20050328
  Serious: Yes (Death)
  Sender: FDA-Public Use
  Company Number: None

PATIENT
  Age: 71 Year
  Sex: Male
  Weight: 86.637 kg

DRUGS (2)
  1. DOCETAXEL 80MG AVENTIS [Suspect]
     Indication: LUNG NEOPLASM MALIGNANT
     Dosage: 35 MG/M2 INTRAVENOUS
     Route: 042
     Dates: start: 20040823, end: 20040920
  2. CARBOPLATIN [Suspect]
     Indication: LUNG NEOPLASM MALIGNANT
     Dosage: AUC 6 INTRAVENOUS
     Route: 042
     Dates: start: 20040823, end: 20040920

REACTIONS (4)
  - CARDIOPULMONARY FAILURE [None]
  - DISEASE PROGRESSION [None]
  - DYSPNOEA [None]
  - MENTAL STATUS CHANGES [None]
